FAERS Safety Report 13882900 (Version 4)
Quarter: 2018Q1

REPORT INFORMATION
  Report Type: Spontaneous
  Country: US (occurrence: US)
  Receive Date: 20170818
  Receipt Date: 20180110
  Transmission Date: 20180508
  Serious: No
  Sender: FDA-Public Use
  Company Number: US-PFIZER INC-2017355206

PATIENT
  Age: 68 Year
  Sex: Female
  Weight: 74 kg

DRUGS (3)
  1. IBRANCE [Suspect]
     Active Substance: PALBOCICLIB
     Dosage: 100 MG, CYCLIC (DAILY 1 CAPSULE) DAY 1-21 Q28 DAYS
     Route: 048
     Dates: start: 20170705
  2. IBRANCE [Suspect]
     Active Substance: PALBOCICLIB
     Indication: BREAST CANCER METASTATIC
     Dosage: 125 MG, CYCLIC (DAILY/1-21 DAYS)
     Route: 048
     Dates: start: 20170706
  3. IBRANCE [Suspect]
     Active Substance: PALBOCICLIB
     Dosage: 125 MG, CYCLIC (ALTERED DOSE OF 1 DAY ON AND 1 DAY OFF, DAYS 1-21 Q28 DAYS)
     Route: 048
     Dates: start: 20170705

REACTIONS (5)
  - Gastrooesophageal reflux disease [Unknown]
  - Fluid intake reduced [Unknown]
  - Stomatitis [Unknown]
  - Dizziness [Unknown]
  - Decreased appetite [Unknown]

NARRATIVE: CASE EVENT DATE: 2017
